FAERS Safety Report 5482002-X (Version None)
Quarter: 2007Q4

REPORT INFORMATION
  Report Type: 
  Country: None (occurrence: None)
  Receive Date: 20071005
  Receipt Date: 20070926
  Transmission Date: 20080405
  Serious: Yes (Hospitalization, Other)
  Sender: FDA-Public Use
  Company Number: 238266K07USA

PATIENT
  Age: 62 Year
  Sex: Female
  Weight: 59.4212 kg

DRUGS (2)
  1. REBIF [Suspect]
     Indication: MULTIPLE SCLEROSIS
     Dosage: 44 MCG, 3 IN 1 WEEKS, SUBCUTANEOUS
     Route: 058
     Dates: start: 20030925, end: 20070717
  2. NOVANTRONE [Suspect]
     Indication: MULTIPLE SCLEROSIS
     Dosage: 1 IN 3 MONTHS, NOT REPORTED
     Dates: end: 20040701

REACTIONS (4)
  - COLON CANCER [None]
  - METASTASES TO BLADDER [None]
  - TUMOUR INVASION [None]
  - URINARY TRACT INFECTION [None]
